FAERS Safety Report 11170637 (Version 1)
Quarter: 2015Q2

REPORT INFORMATION
  Report Type: Spontaneous
  Country: US (occurrence: None)
  Receive Date: 20150604
  Receipt Date: 20150604
  Transmission Date: 20150821
  Serious: Yes (Disabling)
  Sender: FDA-Public Use
  Company Number: None

PATIENT
  Age: 54 Year
  Sex: Female

DRUGS (16)
  1. ATIVAN [Concomitant]
     Active Substance: LORAZEPAM
  2. MULTIVITAMINS [Concomitant]
     Active Substance: VITAMINS
  3. TOPROL XL [Concomitant]
     Active Substance: METOPROLOL SUCCINATE
  4. LOSARTAN [Concomitant]
     Active Substance: LOSARTAN
  5. PRIMROSE OIL [Concomitant]
  6. NORVASC [Concomitant]
     Active Substance: AMLODIPINE BESYLATE
  7. VITAMIN D [Concomitant]
     Active Substance: CHOLECALCIFEROL
  8. CALCIUM [Concomitant]
     Active Substance: CALCIUM
  9. PROBIOTICS [Concomitant]
     Active Substance: PROBIOTICS NOS
  10. OMEPRAZOLE. [Suspect]
     Active Substance: OMEPRAZOLE
     Indication: HELICOBACTER INFECTION
     Route: 048
     Dates: start: 20150512, end: 20150527
  11. MEDFORMIN [Concomitant]
  12. OMEGA OIL [Concomitant]
  13. GARLIC. [Concomitant]
     Active Substance: GARLIC
  14. LIBRAX [Concomitant]
     Active Substance: CHLORDIAZEPOXIDE HYDROCHLORIDE\CLIDINIUM BROMIDE
  15. LUTEIN [Concomitant]
     Active Substance: LUTEIN
  16. MAGNESIUM [Concomitant]
     Active Substance: MAGNESIUM

REACTIONS (22)
  - Muscular weakness [None]
  - Paraesthesia [None]
  - Balance disorder [None]
  - Abdominal distension [None]
  - Dry eye [None]
  - Arthralgia [None]
  - Diarrhoea [None]
  - Pollakiuria [None]
  - Withdrawal syndrome [None]
  - Dysphagia [None]
  - Disturbance in attention [None]
  - Insomnia [None]
  - Dry mouth [None]
  - Lethargy [None]
  - Feeling abnormal [None]
  - Vision blurred [None]
  - Dyspnoea [None]
  - Head discomfort [None]
  - Hypoaesthesia [None]
  - Nausea [None]
  - Anxiety [None]
  - Dizziness [None]

NARRATIVE: CASE EVENT DATE: 20150512
